FAERS Safety Report 23381531 (Version 1)
Quarter: 2024Q1

REPORT INFORMATION
  Report Type: Spontaneous
  Country: HU (occurrence: HU)
  Receive Date: 20240109
  Receipt Date: 20240109
  Transmission Date: 20240410
  Serious: Yes (Hospitalization)
  Sender: FDA-Public Use
  Company Number: None

PATIENT
  Age: 33 Year
  Sex: Female
  Weight: 110 kg

DRUGS (2)
  1. MAVENCLAD [Suspect]
     Active Substance: CLADRIBINE
     Indication: Relapsing-remitting multiple sclerosis
     Route: 048
     Dates: start: 20231120, end: 20231125
  2. SCIPPA [Concomitant]
     Indication: Panic disorder
     Route: 048
     Dates: start: 2021

REACTIONS (5)
  - Polyarthritis [Recovering/Resolving]
  - Erythema [Recovering/Resolving]
  - Arthralgia [Recovering/Resolving]
  - Neutropenia [Recovering/Resolving]
  - Lymphopenia [Recovering/Resolving]

NARRATIVE: CASE EVENT DATE: 20231123
